FAERS Safety Report 21958036 (Version 6)
Quarter: 2023Q2

REPORT INFORMATION
  Report Type: Spontaneous
  Country: US (occurrence: US)
  Receive Date: 20230206
  Receipt Date: 20230529
  Transmission Date: 20230721
  Serious: No
  Sender: FDA-Public Use
  Company Number: US-SA-SAC20230203000328

PATIENT
  Age: 43 Year
  Sex: Female
  Weight: 75 kg

DRUGS (39)
  1. DUPIXENT [Suspect]
     Active Substance: DUPILUMAB
     Indication: Immunodeficiency
     Dosage: 300 MG QOW
     Route: 058
     Dates: start: 202001
  2. DUPIXENT [Suspect]
     Active Substance: DUPILUMAB
     Indication: Urticaria
  3. DUPIXENT [Suspect]
     Active Substance: DUPILUMAB
     Indication: Nasal polyps
  4. DUPIXENT [Suspect]
     Active Substance: DUPILUMAB
     Indication: Asthma
  5. DUPIXENT [Suspect]
     Active Substance: DUPILUMAB
     Indication: Immunodeficiency
     Dosage: 300 MG, QOW
     Route: 058
  6. DUPIXENT [Suspect]
     Active Substance: DUPILUMAB
     Indication: Urticaria
  7. DUPIXENT [Suspect]
     Active Substance: DUPILUMAB
     Indication: Nasal polyps
  8. DUPIXENT [Suspect]
     Active Substance: DUPILUMAB
     Indication: Asthma
  9. DIPHENHYDRAMINE HYDROCHLORIDE [Concomitant]
     Active Substance: DIPHENHYDRAMINE HYDROCHLORIDE
     Dosage: UNK
  10. LIDOCAINE [Concomitant]
     Active Substance: LIDOCAINE
     Dosage: UNK
  11. EPINEPHRINE [Concomitant]
     Active Substance: EPINEPHRINE
     Dosage: UNK
  12. ACETAMINOPHEN [Concomitant]
     Active Substance: ACETAMINOPHEN
     Dosage: UNK
  13. GAMUNEX [Concomitant]
     Active Substance: HUMAN IMMUNOGLOBULIN G
     Dosage: UNK
  14. ESOMEPRAZOLE SODIUM [Concomitant]
     Active Substance: ESOMEPRAZOLE SODIUM
     Dosage: UNK
  15. AIMOVIG [Concomitant]
     Active Substance: ERENUMAB-AOOE
     Dosage: UNK
  16. AMOXICILLINE/CLAVULAANZUUR PCH [AMOXICILLIN SODIUM;CLAVULANATE POTASSI [Concomitant]
     Dosage: UNK
  17. VITAMIN D2 [Concomitant]
     Active Substance: ERGOCALCIFEROL
     Dosage: UNK
  18. FAMOTIDINE [Concomitant]
     Active Substance: FAMOTIDINE
     Dosage: UNK
  19. ONDANSETRON [Concomitant]
     Active Substance: ONDANSETRON
     Dosage: UNK
  20. PREDNISONE [Concomitant]
     Active Substance: PREDNISONE
     Dosage: UNK
  21. PROMETHAZINE [Concomitant]
     Active Substance: PROMETHAZINE HYDROCHLORIDE
     Dosage: UNK
  22. ALBUTEROL SULFATE [Concomitant]
     Active Substance: ALBUTEROL SULFATE
     Dosage: UNK
  23. FIORICET [Concomitant]
     Active Substance: ACETAMINOPHEN\BUTALBITAL\CAFFEINE
     Dosage: UNK
  24. ENTOCORT [Concomitant]
     Active Substance: BUDESONIDE
     Dosage: UNK
  25. SODIUM CHLORIDE [Concomitant]
     Active Substance: SODIUM CHLORIDE
     Dosage: UNK
  26. ANORO ELLIPTA [Concomitant]
     Active Substance: UMECLIDINIUM BROMIDE\VILANTEROL TRIFENATATE
     Dosage: UNK
  27. SINGULAIR [Concomitant]
     Active Substance: MONTELUKAST SODIUM
     Dosage: UNK
  28. BETAMETHASONE DIPROPIONATE AUGMENTED [Concomitant]
     Active Substance: BETAMETHASONE DIPROPIONATE
     Dosage: UNK
  29. TRIAMCINOLONE ACETONIDE [Concomitant]
     Active Substance: TRIAMCINOLONE ACETONIDE
     Dosage: UNK
  30. BREO ELLIPTA [Concomitant]
     Active Substance: FLUTICASONE FUROATE\VILANTEROL TRIFENATATE
     Dosage: UNK
  31. ASPIRIN [Concomitant]
     Active Substance: ASPIRIN
     Dosage: UNK
  32. MAGNESIUM [Concomitant]
     Active Substance: MAGNESIUM
     Dosage: UNK
  33. ZYRTEC [Concomitant]
     Active Substance: CETIRIZINE HYDROCHLORIDE
     Dosage: UNK
  34. MYCOPHENOLATE MOFETIL HYDROCHLORIDE [Concomitant]
     Active Substance: MYCOPHENOLATE MOFETIL HYDROCHLORIDE
     Dosage: UNK
  35. METFORMIN HYDROCHLORIDE [Concomitant]
     Active Substance: METFORMIN HYDROCHLORIDE
     Dosage: UNK
  36. POTASSIUM CHLORIDE [Concomitant]
     Active Substance: POTASSIUM CHLORIDE
     Dosage: UNK
  37. HYQVIA [Concomitant]
     Active Substance: HUMAN IMMUNOGLOBULIN G\HYALURONIDASE RECOMBINANT HUMAN
  38. MONTELUKAST SODIUM [Concomitant]
     Active Substance: MONTELUKAST SODIUM
  39. ENTOCORT EC [Concomitant]
     Active Substance: BUDESONIDE

REACTIONS (9)
  - COVID-19 [Unknown]
  - Cough [Unknown]
  - Bronchitis [Unknown]
  - Headache [Unknown]
  - Pain [Recovered/Resolved]
  - Urinary tract infection [Recovered/Resolved]
  - Sinusitis [Recovered/Resolved]
  - Sinus operation [Unknown]
  - Product use in unapproved indication [Unknown]

NARRATIVE: CASE EVENT DATE: 20200101
